FAERS Safety Report 8043403-9 (Version None)
Quarter: 2011Q4

REPORT INFORMATION
  Report Type: 
  Country: None (occurrence: None)
  Receive Date: 20111209
  Receipt Date: 20111104
  Transmission Date: 20120403
  Serious: No
  Sender: FDA-Public Use
  Company Number: 2011SP052106

PATIENT
  Age: 48 Year
  Sex: Female

DRUGS (3)
  1. INTERFERON [Suspect]
     Indication: PRODUCT USED FOR UNKNOWN INDICATION
     Dates: start: 20110101
  2. RIBAVIRIN [Suspect]
     Indication: PRODUCT USED FOR UNKNOWN INDICATION
     Dates: start: 20110101
  3. VICTRELIS [Suspect]
     Indication: HEPATITIS C
     Dosage: PO
     Route: 048
     Dates: start: 20111019

REACTIONS (4)
  - PYREXIA [None]
  - INCREASED UPPER AIRWAY SECRETION [None]
  - VOMITING [None]
  - NASOPHARYNGITIS [None]
